FAERS Safety Report 8634485 (Version 2)
Quarter: 2012Q4

REPORT INFORMATION
  Report Type: 
  Country: US (occurrence: US)
  Receive Date: 20120626
  Receipt Date: 20121019
  Transmission Date: 20130627
  Serious: Yes (Other)
  Sender: FDA-Public Use
  Company Number: US-PFIZER INC-2012149545

PATIENT
  Age: 7 Year
  Sex: Male
  Weight: 20 kg

DRUGS (4)
  1. GENOTROPIN MQ [Suspect]
     Indication: GROWTH HORMONE DEFICIENCY
     Dosage: 1 mg, daily
     Route: 058
     Dates: start: 20091216
  2. ALBUTEROL SULFATE [Concomitant]
     Indication: NASOPHARYNGITIS
     Dosage: UNK, as needed
  3. ALBUTEROL SULFATE [Concomitant]
     Indication: ASTHMA
  4. ALBUTEROL SULFATE [Concomitant]
     Indication: HYPERSENSITIVITY

REACTIONS (4)
  - Suicidal ideation [Not Recovered/Not Resolved]
  - Aggression [Not Recovered/Not Resolved]
  - Depression [Not Recovered/Not Resolved]
  - Emotional disorder [Not Recovered/Not Resolved]
